FAERS Safety Report 5316400-1 (Version None)
Quarter: 2007Q2

REPORT INFORMATION
  Report Type: 
  Country: None (occurrence: None)
  Receive Date: 20070504
  Receipt Date: 20070426
  Transmission Date: 20071010
  Serious: Yes (Death)
  Sender: FDA-Public Use
  Company Number: US-RB-006101-07

PATIENT

DRUGS (1)
  1. SUBOXONE [Suspect]
     Dosage: UNKNOWN DOSAGE OR STOP DATE
     Route: 048

REACTIONS (1)
  - FALL [None]
